FAERS Safety Report 5363929-6 (Version None)
Quarter: 2007Q2

REPORT INFORMATION
  Report Type: 
  Country: None (occurrence: None)
  Receive Date: 20070530
  Receipt Date: 20070108
  Transmission Date: 20071010
  Serious: No
  Sender: FDA-Public Use
  Company Number: 2007PV028027

PATIENT
  Age: 64 Year
  Sex: Female
  Weight: 89.8122 kg

DRUGS (6)
  1. BYETTA [Suspect]
     Indication: DIABETES MELLITUS NON-INSULIN-DEPENDENT
     Dosage: 5 MCG, BID; SC
     Route: 058
     Dates: start: 20061209
  2. BYETTA [Suspect]
     Indication: WEIGHT DECREASED
     Dosage: 5 MCG, BID; SC
     Route: 058
     Dates: start: 20061209
  3. GLUCOPHAGE [Concomitant]
  4. AVANDIA [Concomitant]
  5. PROTONIX [Concomitant]
  6. ACTOS [Concomitant]

REACTIONS (4)
  - DECREASED APPETITE [None]
  - DEPRESSED MOOD [None]
  - NAUSEA [None]
  - WEIGHT DECREASED [None]
